FAERS Safety Report 6587430-7 (Version None)
Quarter: 2010Q1

REPORT INFORMATION
  Report Type: 
  Country: None (occurrence: None)
  Receive Date: 20100217
  Receipt Date: 20100210
  Transmission Date: 20100710
  Serious: Yes (Other)
  Sender: FDA-Public Use
  Company Number: GB-ALLERGAN-1000556US

PATIENT
  Age: 37 Year
  Sex: Female
  Weight: 60 kg

DRUGS (5)
  1. VISTABEL [Suspect]
     Indication: SKIN WRINKLING
     Dosage: UNK
     Dates: start: 20080929, end: 20080929
  2. VISTABEL [Suspect]
     Dosage: 50 UNITS, SINGLE
     Dates: start: 20090330, end: 20090330
  3. VISTABEL [Suspect]
     Dosage: 50 UNITS, SINGLE
     Dates: start: 20091002, end: 20091002
  4. VISTABEL [Suspect]
     Dosage: 25 UNITS, SINGLE
     Dates: start: 20080311, end: 20080311
  5. VISTABEL [Suspect]
     Dosage: 25 UNITS, SINGLE
     Dates: start: 20080625, end: 20080625

REACTIONS (21)
  - ABDOMINAL DISCOMFORT [None]
  - ALOPECIA [None]
  - ANXIETY [None]
  - ASTHENIA [None]
  - CHEST PAIN [None]
  - DIPLOPIA [None]
  - DIZZINESS [None]
  - DYSPNOEA [None]
  - FATIGUE [None]
  - FEELING ABNORMAL [None]
  - FLUSHING [None]
  - HEADACHE [None]
  - HEART RATE IRREGULAR [None]
  - HYPERSENSITIVITY [None]
  - HYPOAESTHESIA [None]
  - INFLUENZA LIKE ILLNESS [None]
  - MALAISE [None]
  - MUSCULOSKELETAL DISORDER [None]
  - NERVOUSNESS [None]
  - THROAT TIGHTNESS [None]
  - WEIGHT DECREASED [None]
